FAERS Safety Report 23361712 (Version 1)
Quarter: 2024Q1

REPORT INFORMATION
  Report Type: Spontaneous
  Country: US (occurrence: None)
  Receive Date: 20240102
  Receipt Date: 20240102
  Transmission Date: 20240410
  Serious: Yes (Life-Threatening, Hospitalization, Disabling, Other)
  Sender: FDA-Public Use
  Company Number: None

PATIENT
  Age: 41 Year
  Sex: Female

DRUGS (2)
  1. SAPHNELO [Suspect]
     Active Substance: ANIFROLUMAB-FNIA
  2. HEART MONITOR [Concomitant]

REACTIONS (13)
  - Loss of consciousness [None]
  - Vertigo [None]
  - Hypoaesthesia [None]
  - Palpitations [None]
  - Hypertension [None]
  - Blood pressure decreased [None]
  - Blood pressure fluctuation [None]
  - Blood glucose abnormal [None]
  - Renal function test abnormal [None]
  - Dyspnoea [None]
  - Dizziness [None]
  - Dizziness [None]
  - Infusion related reaction [None]

NARRATIVE: CASE EVENT DATE: 20231116
